FAERS Safety Report 14533584 (Version 2)
Quarter: 2018Q1

REPORT INFORMATION
  Report Type: Report from Study
  Country: None (occurrence: BR)
  Receive Date: 20180215
  Receipt Date: 20180222
  Transmission Date: 20180509
  Serious: Yes (Other)
  Sender: FDA-Public Use
  Company Number: BR-ABBVIE-17K-020-2177669-00

PATIENT
  Sex: Female
  Weight: 58 kg

DRUGS (2)
  1. HUMIRA [Suspect]
     Active Substance: ADALIMUMAB
     Indication: RHEUMATOID ARTHRITIS
     Route: 058
     Dates: start: 20170519, end: 201711
  2. METICORTEN [Concomitant]
     Active Substance: PREDNISONE
     Indication: RHEUMATOID ARTHRITIS

REACTIONS (21)
  - Fatigue [Not Recovered/Not Resolved]
  - Tooth infection [Recovered/Resolved]
  - Procedural complication [Recovering/Resolving]
  - Gingival swelling [Recovering/Resolving]
  - Influenza [Recovered/Resolved]
  - Ear discomfort [Recovering/Resolving]
  - Pain [Not Recovered/Not Resolved]
  - Arthralgia [Recovering/Resolving]
  - Tooth disorder [Recovered/Resolved]
  - Tooth fracture [Recovered/Resolved]
  - Dizziness [Not Recovered/Not Resolved]
  - Noninfective gingivitis [Recovered/Resolved]
  - Tremor [Not Recovered/Not Resolved]
  - Pain in extremity [Recovering/Resolving]
  - Pain in extremity [Not Recovered/Not Resolved]
  - Pulpitis dental [Recovered/Resolved]
  - Vitamin D deficiency [Unknown]
  - Malaise [Not Recovered/Not Resolved]
  - Bone operation [Unknown]
  - Labyrinthitis [Recovered/Resolved]
  - Teeth brittle [Recovered/Resolved]

NARRATIVE: CASE EVENT DATE: 2017
